FAERS Safety Report 18496990 (Version 2)
Quarter: 2020Q4

REPORT INFORMATION
  Report Type: Report from Study
  Country: US (occurrence: US)
  Receive Date: 20201112
  Receipt Date: 20201120
  Transmission Date: 20210114
  Serious: Yes (Hospitalization, Other)
  Sender: FDA-Public Use
  Company Number: US-TEVA-2020-US-1846877

PATIENT
  Age: 22 Year
  Sex: Female

DRUGS (1)
  1. COPAXONE [Suspect]
     Active Substance: GLATIRAMER ACETATE
     Dates: start: 20201027

REACTIONS (11)
  - Chest discomfort [Recovered/Resolved]
  - Wrong technique in product usage process [Unknown]
  - Psychogenic seizure [Unknown]
  - Injection site pain [Unknown]
  - Flushing [Recovered/Resolved]
  - Loss of consciousness [Recovered/Resolved]
  - Stress [Unknown]
  - Injection site urticaria [Unknown]
  - Dyspnoea [Recovered/Resolved]
  - Nausea [Unknown]
  - Somnolence [Unknown]

NARRATIVE: CASE EVENT DATE: 2020
